FAERS Safety Report 21862443 (Version 1)
Quarter: 2023Q1

REPORT INFORMATION
  Report Type: Report from Study
  Country: EG (occurrence: EG)
  Receive Date: 20230114
  Receipt Date: 20230114
  Transmission Date: 20230418
  Serious: Yes (Other)
  Sender: FDA-Public Use
  Company Number: EG-002147023-NVSC2023EG006873

PATIENT
  Age: 51 Year
  Sex: Female

DRUGS (6)
  1. COSENTYX [Suspect]
     Active Substance: SECUKINUMAB
     Indication: Psoriatic arthropathy
     Dosage: 1 DOSAGE FORM, Q2W (EVERY 2 WEEKS)
     Route: 058
     Dates: start: 20211101, end: 20220301
  2. COSENTYX [Suspect]
     Active Substance: SECUKINUMAB
     Indication: Rash
  3. METHOTREXATE [Suspect]
     Active Substance: METHOTREXATE
     Indication: Psoriasis
     Dosage: 12 DOSAGE FORM (UNITS)
     Route: 065
     Dates: start: 202204
  4. METHOTREXATE [Suspect]
     Active Substance: METHOTREXATE
     Dosage: 8 DOSAGE FORM (UNITS)
     Route: 065
  5. METHOTREXATE [Suspect]
     Active Substance: METHOTREXATE
     Dosage: 4 DOSAGE FORM (UNITS)
     Route: 065
     Dates: end: 20221001
  6. CHOLESTOP [Concomitant]
     Indication: Blood cholesterol abnormal
     Dosage: 10 MG, QD
     Route: 065
     Dates: start: 20210201

REACTIONS (6)
  - Psoriatic arthropathy [Not Recovered/Not Resolved]
  - C-reactive protein increased [Unknown]
  - Red blood cell sedimentation rate increased [Unknown]
  - Drug ineffective [Not Recovered/Not Resolved]
  - Blood cholesterol increased [Unknown]
  - Inappropriate schedule of product administration [Unknown]

NARRATIVE: CASE EVENT DATE: 20220301
